FAERS Safety Report 7104244-X (Version None)
Quarter: 2010Q4

REPORT INFORMATION
  Report Type: 
  Country: None (occurrence: None)
  Receive Date: 20101115
  Receipt Date: 20100611
  Transmission Date: 20110411
  Serious: No
  Sender: FDA-Public Use
  Company Number: US-ALLERGAN-1007677US

PATIENT
  Sex: Male

DRUGS (1)
  1. BOTOXA? [Suspect]
     Indication: TORTICOLLIS
     Dosage: 200 UNITS, SINGLE
     Dates: start: 20100205, end: 20100205

REACTIONS (1)
  - DYSPHAGIA [None]
